FAERS Safety Report 8979136 (Version 2)
Quarter: 2013Q2

REPORT INFORMATION
  Report Type: Spontaneous
  Country: US (occurrence: US)
  Receive Date: 20121221
  Receipt Date: 20130412
  Transmission Date: 20140414
  Serious: Yes (Death, Hospitalization)
  Sender: FDA-Public Use
  Company Number: US-GLAXOSMITHKLINE-A1005908A

PATIENT
  Age: 75 Year
  Sex: Female

DRUGS (4)
  1. VOTRIENT [Suspect]
     Indication: NEOPLASM MALIGNANT
     Route: 048
     Dates: start: 201112, end: 201202
  2. AMIODARONE [Concomitant]
  3. STALEVO [Concomitant]
  4. AMANTADINE [Concomitant]

REACTIONS (5)
  - Cardiac failure [Fatal]
  - Pneumonia [Unknown]
  - Atrial fibrillation [Unknown]
  - Hypotension [Fatal]
  - Heart rate increased [Fatal]
